FAERS Safety Report 4334217-1 (Version None)
Quarter: 2004Q2

REPORT INFORMATION
  Report Type: 
  Country: None (occurrence: None)
  Receive Date: 20040402
  Receipt Date: 20040323
  Transmission Date: 20050107
  Serious: Yes (Other)
  Sender: FDA-Public Use
  Company Number: 2004200944CA

PATIENT
  Sex: Male

DRUGS (1)
  1. BEXTRA [Suspect]
     Dosage: ORAL
     Route: 048

REACTIONS (3)
  - DYSPNOEA [None]
  - RASH [None]
  - SKIN REACTION [None]
